FAERS Safety Report 22357309 (Version 1)
Quarter: 2023Q2

REPORT INFORMATION
  Report Type: Spontaneous
  Country: US (occurrence: US)
  Receive Date: 20230524
  Receipt Date: 20230524
  Transmission Date: 20230721
  Serious: No
  Sender: FDA-Public Use
  Company Number: US-ABBVIE-5176681

PATIENT
  Sex: Male

DRUGS (1)
  1. SKYRIZI [Suspect]
     Active Substance: RISANKIZUMAB-RZAA
     Indication: Crohn^s disease
     Dosage: THE ONSET OF THE EVENT OF BODY ACHES, STIFFNESS, MUSCLE TIGHTNESS, INCREASED HEART RATE, FATIGUE,...
     Route: 042
     Dates: start: 20230516

REACTIONS (8)
  - Dyspnoea [Unknown]
  - Pain [Unknown]
  - Musculoskeletal stiffness [Unknown]
  - Muscle tightness [Unknown]
  - Fatigue [Unknown]
  - Heart rate increased [Unknown]
  - Night sweats [Unknown]
  - Cough [Unknown]
